FAERS Safety Report 17989430 (Version 2)
Quarter: 2020Q3

REPORT INFORMATION
  Report Type: Spontaneous
  Country: CZ (occurrence: CZ)
  Receive Date: 20200707
  Receipt Date: 20200730
  Transmission Date: 20201103
  Serious: Yes (Other)
  Sender: FDA-Public Use
  Company Number: CZ-MACLEODS PHARMACEUTICALS US LTD-MAC2020026977

PATIENT

DRUGS (18)
  1. LITHIUM. [Concomitant]
     Active Substance: LITHIUM
     Dosage: 1050 MILLIGRAM, LEVEL OF 0.94 MMOL/L
     Route: 065
     Dates: start: 2018
  2. OLANZAPINE 5 MG [Suspect]
     Active Substance: OLANZAPINE
     Indication: BIPOLAR DISORDER
  3. QUETIAPINE. [Suspect]
     Active Substance: QUETIAPINE
     Indication: DEPRESSION
     Dosage: 25 MILLIGRAM
     Route: 065
     Dates: end: 201810
  4. VALPROIC ACID. [Suspect]
     Active Substance: VALPROIC ACID
     Dosage: 1000 MILLIGRAM, QD
     Route: 065
  5. MIRTAZAPINE. [Suspect]
     Active Substance: MIRTAZAPINE
     Indication: HYPOSOMNIA
     Dosage: 45 MILLIGRAM, QD
     Route: 065
  6. CLONAZEPAM. [Concomitant]
     Active Substance: CLONAZEPAM
     Indication: ANXIETY
     Dosage: 1.5 MILLIGRAM, QD
     Route: 065
     Dates: start: 2018, end: 2018
  7. LITHIUM. [Concomitant]
     Active Substance: LITHIUM
     Indication: BIPOLAR DISORDER
     Dosage: UNK
     Route: 065
     Dates: start: 2018, end: 2018
  8. ARIPIPRAZOLE. [Concomitant]
     Active Substance: ARIPIPRAZOLE
     Dosage: 10 MILLIGRAM
     Route: 065
  9. VENLAFAXINE [Suspect]
     Active Substance: VENLAFAXINE HYDROCHLORIDE
     Indication: BIPOLAR DISORDER
     Dosage: 150 MILLIGRAM, QD
     Route: 065
  10. VALPROIC ACID. [Suspect]
     Active Substance: VALPROIC ACID
     Indication: BIPOLAR DISORDER
     Dosage: 800 MILLIGRAM, QD
     Route: 065
  11. OLANZAPINE 5 MG [Suspect]
     Active Substance: OLANZAPINE
     Indication: DEPRESSION
     Dosage: 5 MILLIGRAM
     Route: 065
     Dates: start: 2018, end: 201812
  12. LITHIUM. [Concomitant]
     Active Substance: LITHIUM
     Indication: DEPRESSION
     Dosage: UNK, TITRATION
     Route: 065
     Dates: start: 2018
  13. QUETIAPINE. [Suspect]
     Active Substance: QUETIAPINE
     Indication: HYPOMANIA
     Dosage: 37.5 MILLIGRAM
     Route: 065
     Dates: start: 201805
  14. VENLAFAXINE [Suspect]
     Active Substance: VENLAFAXINE HYDROCHLORIDE
     Indication: DEPRESSION
     Dosage: 50 MILLIGRAM, QD, DOSE DECREASED
     Route: 065
     Dates: start: 201805, end: 201810
  15. MIRTAZAPINE. [Suspect]
     Active Substance: MIRTAZAPINE
     Dosage: 30 MILLIGRAM, QD, DOSE DECREASED
     Route: 065
  16. LITHIUM. [Concomitant]
     Active Substance: LITHIUM
     Dosage: 1200 MILLIGRAM, QD, LEVEL OF 1.08 MMOL/L
     Route: 065
  17. VENLAFAXINE [Suspect]
     Active Substance: VENLAFAXINE HYDROCHLORIDE
     Indication: HYPOMANIA
     Dosage: 75 MILLIGRAM, QD
     Route: 065
     Dates: start: 201801, end: 201805
  18. ARIPIPRAZOLE. [Concomitant]
     Active Substance: ARIPIPRAZOLE
     Indication: DEPRESSION
     Dosage: 5 MILLIGRAM
     Route: 065
     Dates: start: 201710, end: 201805

REACTIONS (9)
  - Suicide attempt [Unknown]
  - Weight increased [Unknown]
  - Drug intolerance [Unknown]
  - Blood pressure increased [Recovered/Resolved]
  - Dizziness [Recovered/Resolved]
  - Fatigue [Unknown]
  - Suicidal ideation [Recovered/Resolved]
  - Hypotension [Unknown]
  - Toxicity to various agents [Unknown]

NARRATIVE: CASE EVENT DATE: 2018
